FAERS Safety Report 8612931-7 (Version None)
Quarter: 2012Q3

REPORT INFORMATION
  Report Type: 
  Country: None (occurrence: None)
  Receive Date: 20120822
  Receipt Date: 20120809
  Transmission Date: 20120928
  Serious: Yes (Disabling)
  Sender: FDA-Public Use
  Company Number: CHPA2012US017958

PATIENT
  Sex: Female

DRUGS (1)
  1. EXCEDRIN SINUS HEADACHE CAPLETS [Suspect]
     Dosage: UNK DF, UNK

REACTIONS (2)
  - ACTIVITIES OF DAILY LIVING IMPAIRED [None]
  - DRUG INEFFECTIVE [None]
